FAERS Safety Report 7781436-8 (Version None)
Quarter: 2011Q3

REPORT INFORMATION
  Report Type: 
  Country: None (occurrence: None)
  Receive Date: 20110927
  Receipt Date: 20110919
  Transmission Date: 20111222
  Serious: Yes (Hospitalization)
  Sender: FDA-Public Use
  Company Number: PHHY2011IT83265

PATIENT
  Sex: Male

DRUGS (3)
  1. BEVACIZUMAB [Concomitant]
  2. CAPECITABINE [Concomitant]
  3. OXALIPLATIN [Suspect]
     Indication: COLON CANCER METASTATIC
     Dosage: UNK
     Route: 042
     Dates: start: 20110825, end: 20110825

REACTIONS (3)
  - EYELID PTOSIS [None]
  - PARAESTHESIA [None]
  - NEUROTOXICITY [None]
